FAERS Safety Report 5069587-2 (Version None)
Quarter: 2006Q3

REPORT INFORMATION
  Report Type: 
  Country: None (occurrence: None)
  Receive Date: 20060803
  Receipt Date: 20060523
  Transmission Date: 20061208
  Serious: Yes (Hospitalization)
  Sender: FDA-Public Use
  Company Number: US-JNJFOC-20060505105

PATIENT
  Age: 5 Month
  Sex: Male

DRUGS (3)
  1. REMICADE [Suspect]
     Indication: KAWASAKI'S DISEASE
     Route: 042
  2. GAMMAGARD [Concomitant]
     Indication: KAWASAKI'S DISEASE
     Route: 042
  3. ASPIRIN [Concomitant]
     Indication: KAWASAKI'S DISEASE
     Dosage: 3 TO 5 MG/KG/DAY

REACTIONS (2)
  - CONCOMITANT DISEASE PROGRESSION [None]
  - CORONARY ARTERY ANEURYSM [None]
